FAERS Safety Report 18550816 (Version 1)
Quarter: 2020Q4

REPORT INFORMATION
  Report Type: Spontaneous
  Country: US (occurrence: US)
  Receive Date: 20201126
  Receipt Date: 20201126
  Transmission Date: 20210114
  Serious: No
  Sender: FDA-Public Use
  Company Number: US-PFIZER INC-2020467379

PATIENT
  Age: 89 Year
  Sex: Female
  Weight: 64.86 kg

DRUGS (1)
  1. ZOSYN [Suspect]
     Active Substance: PIPERACILLIN SODIUM\TAZOBACTAM SODIUM
     Dosage: UNK, 3X/DAY
     Route: 042
     Dates: start: 201905, end: 201905

REACTIONS (4)
  - Rash [Not Recovered/Not Resolved]
  - Rash pruritic [Unknown]
  - Dermatitis allergic [Not Recovered/Not Resolved]
  - Immune system disorder [Unknown]

NARRATIVE: CASE EVENT DATE: 2019
